FAERS Safety Report 9587440 (Version 7)
Quarter: 2017Q3

REPORT INFORMATION
  Report Type: Report from Study
  Country: CA (occurrence: CA)
  Receive Date: 20131003
  Receipt Date: 20170823
  Transmission Date: 20171128
  Serious: Yes (Other)
  Sender: FDA-Public Use
  Company Number: PHHY2013CA110105

PATIENT
  Sex: Male

DRUGS (1)
  1. GILENYA [Suspect]
     Active Substance: FINGOLIMOD HYDROCHLORIDE
     Indication: MULTIPLE SCLEROSIS
     Dosage: 0.5 MG, QD
     Route: 048
     Dates: start: 20130911, end: 20170817

REACTIONS (6)
  - Nystagmus [Unknown]
  - Oculogyric crisis [Unknown]
  - Multiple sclerosis [Unknown]
  - Angina pectoris [Unknown]
  - Cognitive disorder [Unknown]
  - Memory impairment [Unknown]
